FAERS Safety Report 7921855-X (Version None)
Quarter: 2011Q4

REPORT INFORMATION
  Report Type: 
  Country: None (occurrence: None)
  Receive Date: 20111117
  Receipt Date: 20111104
  Transmission Date: 20120403
  Serious: No
  Sender: FDA-Public Use
  Company Number: US-B.I. PHARMACEUTICALS,INC./RIDGEFIELD-2011-BP-25717BP

PATIENT
  Sex: Female

DRUGS (4)
  1. TOPROL-XL [Suspect]
  2. LOSARTAN POTASSIUM [Concomitant]
  3. AMLODIPINE BESYLATE [Suspect]
  4. CATAPRES [Suspect]

REACTIONS (1)
  - BLOOD PRESSURE ABNORMAL [None]
